FAERS Safety Report 4482490-1 (Version None)
Quarter: 2004Q3

REPORT INFORMATION
  Report Type: 
  Country: None (occurrence: None)
  Receive Date: 20040921
  Receipt Date: 20040518
  Transmission Date: 20050211
  Serious: Yes (Hospitalization)
  Sender: FDA-Public Use
  Company Number: 163-20785-04050459

PATIENT
  Age: 60 Year
  Sex: Male

DRUGS (16)
  1. THALOMID [Suspect]
     Indication: METASTATIC RENAL CELL CARCINOMA
     Dosage: 100 MG, AT BEDTIME, ORAL
     Route: 048
     Dates: start: 20030409, end: 20040501
  2. PREVACID [Concomitant]
  3. ZOLOFT [Concomitant]
  4. MORPHINE SULFATE [Concomitant]
  5. COMPAZINE [Concomitant]
  6. CREON (PANCRELIPASE) [Concomitant]
  7. LEVAQUIN [Concomitant]
  8. LACTULOSE [Concomitant]
  9. FESO4 (FERROUS SULFATE) [Concomitant]
  10. DURAGESIC [Concomitant]
  11. ARANESP (ZOLEDRONIC ACID) [Concomitant]
  12. MYCELEX [Concomitant]
  13. NEURONTIN [Concomitant]
  14. DECADRON [Concomitant]
  15. HYDROCORTISONE [Concomitant]
  16. ACETYLSALICYLIC ACID SRT [Concomitant]

REACTIONS (4)
  - DISEASE PROGRESSION [None]
  - FATIGUE [None]
  - OEDEMA [None]
  - PNEUMONIA [None]
